FAERS Safety Report 18756499 (Version 1)
Quarter: 2021Q1

REPORT INFORMATION
  Report Type: Spontaneous
  Country: NL (occurrence: NL)
  Receive Date: 20210119
  Receipt Date: 20210119
  Transmission Date: 20210419
  Serious: Yes (Other)
  Sender: FDA-Public Use
  Company Number: NL-PFIZER INC-2021027563

PATIENT
  Sex: Male
  Weight: 63.7 kg

DRUGS (1)
  1. DOXAZOSIN MESILATE [Suspect]
     Active Substance: DOXAZOSIN MESYLATE
     Indication: HYPERTENSION
     Dosage: 1 PIECE PER DAY
     Dates: start: 202006, end: 20201126

REACTIONS (3)
  - Prurigo [Recovering/Resolving]
  - Toxic skin eruption [Recovering/Resolving]
  - Rash pruritic [Recovering/Resolving]
